FAERS Safety Report 6261661-8 (Version None)
Quarter: 2009Q3

REPORT INFORMATION
  Report Type: 
  Country: None (occurrence: None)
  Receive Date: 20090709
  Receipt Date: 20090701
  Transmission Date: 20100115
  Serious: Yes (Death, Hospitalization)
  Sender: FDA-Public Use
  Company Number: ES-ELI_LILLY_AND_COMPANY-ES200907000289

PATIENT
  Age: 81 Year
  Sex: Male

DRUGS (8)
  1. FORTEO [Suspect]
     Indication: OSTEOPOROSIS
     Dosage: 20 UG, UNKNOWN
     Route: 058
     Dates: start: 20080401
  2. IVOR [Concomitant]
     Dosage: 7500, UNKNOWN
     Route: 065
  3. OMEPRAZOLE [Concomitant]
     Dosage: UNK, UNKNOWN
     Route: 065
  4. SEGURIL [Concomitant]
     Dosage: UNK, UNKNOWN
     Route: 065
  5. ASPARTIC ACID [Concomitant]
     Dosage: UNK, UNKNOWN
     Route: 065
  6. OXYCONTIN [Concomitant]
     Dosage: UNK, UNKNOWN
     Route: 065
  7. DURAGESIC-100 [Concomitant]
     Dosage: UNK, UNKNOWN
     Route: 065
  8. CALCIUM [Concomitant]
     Dosage: UNK, UNKNOWN
     Route: 065

REACTIONS (4)
  - BLOOD GLUCOSE INCREASED [None]
  - CARDIAC ARREST [None]
  - DEHYDRATION [None]
  - SPEECH DISORDER [None]
